FAERS Safety Report 4734173-8 (Version None)
Quarter: 2005Q3

REPORT INFORMATION
  Report Type: 
  Country: None (occurrence: None)
  Receive Date: 20050803
  Receipt Date: 20050803
  Transmission Date: 20060218
  Serious: Yes (Other)
  Sender: FDA-Public Use
  Company Number: None

PATIENT
  Age: 43 Year
  Sex: Female
  Weight: 61.2356 kg

DRUGS (6)
  1. ZYRTEC [Suspect]
     Indication: MULTIPLE ALLERGIES
     Dosage: 10 MG TAB / 1 X / DAY
     Dates: start: 20030101
  2. ZYRTEC [Suspect]
     Indication: SINUS DISORDER
     Dosage: 10 MG TAB / 1 X / DAY
     Dates: start: 20030101
  3. SINGULAIR [Concomitant]
  4. LEXAPRO [Concomitant]
  5. AMBIEN [Concomitant]
  6. FIORINAL W/CODEINE [Concomitant]

REACTIONS (3)
  - ERUCTATION [None]
  - NAUSEA [None]
  - STOMACH DISCOMFORT [None]
